FAERS Safety Report 16636040 (Version 3)
Quarter: 2019Q3

REPORT INFORMATION
  Report Type: Spontaneous
  Country: GB (occurrence: GB)
  Receive Date: 20190726
  Receipt Date: 20190819
  Transmission Date: 20191004
  Serious: Yes (Other)
  Sender: FDA-Public Use
  Company Number: GB-NOVOPROD-674337

PATIENT
  Age: 30 Year
  Sex: Male
  Weight: 103.5 kg

DRUGS (1)
  1. NOVOMIX 30 PENFILL [Suspect]
     Active Substance: INSULIN ASPART
     Indication: TYPE 1 DIABETES MELLITUS
     Dosage: 67 TOTAL DAILY DOSE
     Route: 058
     Dates: start: 20110830

REACTIONS (3)
  - Hypoglycaemic seizure [Recovered/Resolved]
  - Wrong technique in product usage process [Unknown]
  - White blood cell count increased [Unknown]

NARRATIVE: CASE EVENT DATE: 20190713
